FAERS Safety Report 21002188 (Version 1)
Quarter: 2022Q2

REPORT INFORMATION
  Report Type: Spontaneous
  Country: AT (occurrence: AT)
  Receive Date: 20220624
  Receipt Date: 20220624
  Transmission Date: 20220721
  Serious: Yes (Other)
  Sender: FDA-Public Use
  Company Number: None

PATIENT
  Age: 51 Year
  Sex: Female

DRUGS (1)
  1. DICLOFENAC SODIUM [Suspect]
     Active Substance: DICLOFENAC SODIUM
     Indication: Rheumatic disorder
     Dosage: FORM STRENGTH: 50 MG, ACCORDING TO TECHNICAL INFORMATION AND RECOMMENDATIONS FOR USE
     Route: 065
     Dates: start: 20220525, end: 20220525

REACTIONS (2)
  - Drug eruption [Unknown]
  - Type IV hypersensitivity reaction [Unknown]

NARRATIVE: CASE EVENT DATE: 20220525
